FAERS Safety Report 6618115-6 (Version None)
Quarter: 2010Q1

REPORT INFORMATION
  Report Type: 
  Country: None (occurrence: None)
  Receive Date: 20100308
  Receipt Date: 20100301
  Transmission Date: 20100710
  Serious: Yes (Death, Hospitalization)
  Sender: FDA-Public Use
  Company Number: FR-ROCHE-685615

PATIENT
  Sex: Male
  Weight: 68 kg

DRUGS (12)
  1. BEVACIZUMAB [Suspect]
     Indication: NON-SMALL CELL LUNG CANCER
     Dosage: LAST DOSE PRIOR TO SAE: 11 FEB 2010
     Route: 042
     Dates: start: 20100211, end: 20100219
  2. PEMETREXED [Suspect]
     Indication: NON-SMALL CELL LUNG CANCER
     Dosage: LAST DOSE PRIOR TO SAE: 11 FEB 2010
     Route: 042
     Dates: start: 20100121, end: 20100219
  3. CISPLATIN [Suspect]
     Indication: NON-SMALL CELL LUNG CANCER
     Dosage: LAST DOSE PRIOR TO SAE: 11 FEB 2010
     Route: 042
     Dates: start: 20100121, end: 20100219
  4. CONTRAMAL [Suspect]
     Indication: DRUG USE FOR UNKNOWN INDICATION
     Route: 065
  5. ZOPHREN [Concomitant]
     Dosage: TDD 2/J
     Dates: start: 20100212, end: 20100213
  6. LOXEN [Concomitant]
     Dosage: TDD 150 MG/J
     Dates: start: 20100107, end: 20100219
  7. ALDACTONE [Concomitant]
     Dosage: TDD 75 MG/J
     Dates: start: 20100127, end: 20100219
  8. INDAPAMIDE [Concomitant]
     Dosage: TDD 1.5 MG/J
     Dates: start: 20100127, end: 20100213
  9. DOLIPRANE [Concomitant]
     Dosage: TDD 3 G/J
     Dates: start: 20100111, end: 20100219
  10. SPECIAFOLDINE [Concomitant]
     Dosage: TDD 0.4 MG/J
     Dates: start: 20100111, end: 20100219
  11. SOLUPRED [Concomitant]
     Dosage: TDD 40 MG/J
     Dates: start: 20100210, end: 20100219
  12. ZOPICLONE [Concomitant]
     Dosage: TDD 7.5 MG/J
     Dates: start: 20100126, end: 20100219

REACTIONS (1)
  - INTESTINAL ISCHAEMIA [None]
